FAERS Safety Report 5367587-6 (Version None)
Quarter: 2007Q2

REPORT INFORMATION
  Report Type: 
  Country: None (occurrence: None)
  Receive Date: 20070620
  Receipt Date: 20070620
  Transmission Date: 20071010
  Serious: No
  Sender: FDA-Public Use
  Company Number: None

PATIENT
  Sex: Female

DRUGS (5)
  1. VERAMYST [Suspect]
     Indication: RHINITIS ALLERGIC
     Dosage: 2 SPRAYS EACH NOSTRIL QD NASAL
     Route: 045
     Dates: start: 20070613
  2. ADVAIR DISKUS 100/50 [Concomitant]
  3. ASTELIN [Concomitant]
  4. SINGULAIR [Concomitant]
  5. PALGIC [Concomitant]

REACTIONS (3)
  - DIZZINESS [None]
  - PALPITATIONS [None]
  - PRESYNCOPE [None]
